FAERS Safety Report 6073490-9 (Version None)
Quarter: 2009Q1

REPORT INFORMATION
  Report Type: 
  Country: None (occurrence: None)
  Receive Date: 20090211
  Receipt Date: 20090206
  Transmission Date: 20090719
  Serious: Yes (Other)
  Sender: FDA-Public Use
  Company Number: FR-BAYER-200912637GPV

PATIENT
  Age: 64 Year
  Sex: Male

DRUGS (1)
  1. IZILOX [Suspect]
     Indication: INFECTION
     Route: 048
     Dates: start: 20081201, end: 20081201

REACTIONS (8)
  - APHTHOUS STOMATITIS [None]
  - FATIGUE [None]
  - GLOSSITIS [None]
  - HAEMATOMA [None]
  - MOUTH ULCERATION [None]
  - OEDEMA PERIPHERAL [None]
  - PAIN [None]
  - PRURITUS GENERALISED [None]
